FAERS Safety Report 9285248 (Version 1)
Quarter: 2013Q2

REPORT INFORMATION
  Report Type: Spontaneous
  Country: CA (occurrence: CA)
  Receive Date: 20130513
  Receipt Date: 20130513
  Transmission Date: 20140414
  Serious: Yes (Life-Threatening)
  Sender: FDA-Public Use
  Company Number: PHHY2013CA046309

PATIENT
  Age: 36 Year
  Sex: Female
  Weight: 52.15 kg

DRUGS (4)
  1. FEMARA [Suspect]
     Dosage: 2.5 MG, 1 TABLET EVERY DAY FOR SIX DAYS
     Route: 048
  2. ENDOMETRIN [Concomitant]
     Dosage: UNK UKN, UNK
     Route: 067
  3. OVIDREL [Concomitant]
     Dosage: UNK UKN, UNK
     Route: 058
  4. PUREGON [Concomitant]
     Dosage: UNK UKN, UNK

REACTIONS (4)
  - Emotional disorder [Recovered/Resolved]
  - Suicidal ideation [Recovered/Resolved]
  - Fear [Recovered/Resolved]
  - Quality of life decreased [Recovered/Resolved]
